FAERS Safety Report 14966610 (Version 5)
Quarter: 2020Q1

REPORT INFORMATION
  Report Type: Report from Study
  Country: US (occurrence: CA)
  Receive Date: 20180604
  Receipt Date: 20200213
  Transmission Date: 20200409
  Serious: Yes (Other)
  Sender: FDA-Public Use
  Company Number: US-BRISTOL-MYERS SQUIBB COMPANY-BMS-2017-063085

PATIENT
  Age: 88 Year
  Sex: Female

DRUGS (2)
  1. ABATACEPT [Suspect]
     Active Substance: ABATACEPT
     Indication: PSORIATIC ARTHROPATHY
     Dosage: 500 MILLIGRAM, Q4WK
     Route: 042
     Dates: start: 20140910
  2. VOLTARENE (DICLOFENAC SODIUM) [Concomitant]
     Active Substance: DICLOFENAC SODIUM
     Indication: PRODUCT USED FOR UNKNOWN INDICATION
     Dosage: UNK, BID
     Route: 065

REACTIONS (15)
  - Pulmonary fibrosis [Unknown]
  - Erythema [Recovered/Resolved]
  - Adverse event [Recovered/Resolved]
  - Arthralgia [Unknown]
  - Skin exfoliation [Unknown]
  - Pain in extremity [Not Recovered/Not Resolved]
  - Oedema peripheral [Unknown]
  - Fall [Unknown]
  - Eye haematoma [Unknown]
  - Contusion [Unknown]
  - Limb injury [Unknown]
  - Musculoskeletal pain [Not Recovered/Not Resolved]
  - Haematoma [Unknown]
  - Pneumonia [Recovering/Resolving]
  - Bronchitis [Not Recovered/Not Resolved]

NARRATIVE: CASE EVENT DATE: 20171003
